FAERS Safety Report 7481229-5 (Version None)
Quarter: 2011Q2

REPORT INFORMATION
  Report Type: 
  Country: None (occurrence: None)
  Receive Date: 20110516
  Receipt Date: 20110504
  Transmission Date: 20111010
  Serious: Yes (Hospitalization, Other)
  Sender: FDA-Public Use
  Company Number: PHHY2011BR40141

PATIENT
  Sex: Female

DRUGS (1)
  1. DIOVAN HCT [Suspect]
     Indication: BLOOD PRESSURE
     Dosage: 160 MG VALS AND 12.5 MG HYDR (ONE TABLET A DAY)
     Route: 048

REACTIONS (7)
  - INJURY [None]
  - DYSENTERY [None]
  - HELICOBACTER INFECTION [None]
  - MALAISE [None]
  - SYNCOPE [None]
  - THROMBOSIS [None]
  - BLOOD PRESSURE DECREASED [None]
